FAERS Safety Report 14548342 (Version 2)
Quarter: 2019Q1

REPORT INFORMATION
  Report Type: Spontaneous
  Country: US (occurrence: US)
  Receive Date: 20180219
  Receipt Date: 20190205
  Transmission Date: 20190417
  Serious: No
  Sender: FDA-Public Use
  Company Number: US-ROCHE-1878428

PATIENT
  Age: 30 Year
  Sex: Female

DRUGS (10)
  1. XOLAIR [Suspect]
     Active Substance: OMALIZUMAB
     Route: 058
     Dates: start: 201511
  2. AMOXICILLIN. [Concomitant]
     Active Substance: AMOXICILLIN
     Dosage: 500-125M
     Route: 065
  3. CYCLOBENZAPRIN [Concomitant]
     Active Substance: CYCLOBENZAPRINE
     Route: 065
  4. AMRIX [Concomitant]
     Active Substance: CYCLOBENZAPRINE HYDROCHLORIDE
     Route: 065
  5. VENTOLIN HFA [Concomitant]
     Active Substance: ALBUTEROL SULFATE
     Dosage: 108 (90
     Route: 065
  6. XOLAIR [Suspect]
     Active Substance: OMALIZUMAB
     Indication: ASTHMA
     Route: 058
     Dates: start: 20151109
  7. ONDANSETRON [Concomitant]
     Active Substance: ONDANSETRON
     Dosage: 32/50 ML
     Route: 065
  8. XOLAIR [Suspect]
     Active Substance: OMALIZUMAB
     Dosage: VIAL
     Route: 058
  9. NAPROSYN [Concomitant]
     Active Substance: NAPROXEN
     Route: 065
  10. CEPHALEXIN. [Concomitant]
     Active Substance: CEPHALEXIN
     Route: 065

REACTIONS (5)
  - Mass [Not Recovered/Not Resolved]
  - Contusion [Not Recovered/Not Resolved]
  - Haemorrhage [Not Recovered/Not Resolved]
  - Rash [Not Recovered/Not Resolved]
  - Ear infection [Unknown]

NARRATIVE: CASE EVENT DATE: 201707
